FAERS Safety Report 6195122-1 (Version None)
Quarter: 2009Q2

REPORT INFORMATION
  Report Type: 
  Country: None (occurrence: None)
  Receive Date: 20090519
  Receipt Date: 20090512
  Transmission Date: 20091009
  Serious: Yes (Other)
  Sender: FDA-Public Use
  Company Number: JP-JNJFOC-20080900071

PATIENT
  Sex: Female
  Weight: 46 kg

DRUGS (16)
  1. ITRIZOLE [Suspect]
     Indication: ANTIFUNGAL PROPHYLAXIS
     Route: 041
  2. ITRIZOLE [Suspect]
     Route: 048
  3. IDARUBICIN HYDROCHLORIDE [Interacting]
     Indication: DRUG USE FOR UNKNOWN INDICATION
     Route: 042
  4. CYLOCIDE [Interacting]
     Indication: ACUTE MYELOID LEUKAEMIA
     Route: 041
  5. MEROPENEM [Suspect]
     Indication: FEBRILE NEUTROPENIA
     Route: 042
  6. SOLDEM 3A [Concomitant]
     Indication: ACUTE MYELOID LEUKAEMIA
     Route: 041
  7. ZYLORIC [Concomitant]
     Indication: PROPHYLAXIS
     Route: 048
  8. GASTER [Concomitant]
     Indication: PROPHYLAXIS
     Route: 048
  9. FUNGUARD [Concomitant]
     Route: 042
  10. CIPROFLOXACIN [Concomitant]
     Indication: PROPHYLAXIS
     Route: 048
  11. SOLDEM 3A [Concomitant]
     Route: 041
  12. GRANISETRON HYDROCHLORIDE [Concomitant]
     Indication: ACUTE MYELOID LEUKAEMIA
     Route: 042
  13. IDAMYCIN [Concomitant]
     Indication: ACUTE MYELOID LEUKAEMIA
     Route: 042
  14. MAXIPIME [Concomitant]
     Indication: FEBRILE NEUTROPENIA
     Route: 042
  15. NEUTROGIN [Concomitant]
     Indication: FEBRILE NEUTROPENIA
     Route: 042
  16. SUPRECUR MP [Concomitant]
     Indication: MENORRHAGIA
     Route: 058

REACTIONS (4)
  - CATHETER RELATED COMPLICATION [None]
  - DRUG INTERACTION [None]
  - FLATULENCE [None]
  - MENORRHAGIA [None]
